FAERS Safety Report 11400325 (Version 1)
Quarter: 2015Q3

REPORT INFORMATION
  Report Type: Report from Study
  Country: SA (occurrence: SA)
  Receive Date: 20150820
  Receipt Date: 20150820
  Transmission Date: 20151125
  Serious: Yes (Other)
  Sender: FDA-Public Use
  Company Number: SA-BAXTER-2015BAX046102

PATIENT
  Sex: Female

DRUGS (1)
  1. ENDOXAN VIALS [Suspect]
     Active Substance: CYCLOPHOSPHAMIDE
     Indication: SYSTEMIC LUPUS ERYTHEMATOSUS
     Route: 042

REACTIONS (2)
  - Amenorrhoea [Recovered/Resolved]
  - Maternal exposure before pregnancy [Recovered/Resolved]
